FAERS Safety Report 9366386 (Version 1)
Quarter: 2013Q2

REPORT INFORMATION
  Report Type: Spontaneous
  Country: US (occurrence: US)
  Receive Date: 20130625
  Receipt Date: 20130625
  Transmission Date: 20140414
  Serious: No
  Sender: FDA-Public Use
  Company Number: US-GLAXOSMITHKLINE-A1019849A

PATIENT
  Sex: Female

DRUGS (3)
  1. VERAMYST [Suspect]
     Indication: PRODUCT USED FOR UNKNOWN INDICATION
     Route: 045
     Dates: start: 201203
  2. CLARITIN D [Concomitant]
  3. AMOXICILLIN [Concomitant]

REACTIONS (7)
  - Back injury [Recovering/Resolving]
  - Neck injury [Unknown]
  - Adverse drug reaction [Unknown]
  - Chills [Unknown]
  - Neck pain [Unknown]
  - Muscle spasms [Unknown]
  - Restlessness [Unknown]
